FAERS Safety Report 4849261-5 (Version None)
Quarter: 2005Q4

REPORT INFORMATION
  Report Type: 
  Country: None (occurrence: None)
  Receive Date: 20051207
  Receipt Date: 20051202
  Transmission Date: 20060501
  Serious: Yes (Death)
  Sender: FDA-Public Use
  Company Number: OXYA20050009

PATIENT
  Age: 40 Year
  Sex: Female

DRUGS (4)
  1. OXYCODONE/APAP [Suspect]
     Dosage: PO
     Route: 048
     Dates: start: 20040101, end: 20040101
  2. MIRTAZAPINE [Suspect]
     Dosage: PO
     Route: 048
     Dates: start: 20040101, end: 20040101
  3. CARISPRODOL [Suspect]
     Dosage: PO
     Route: 048
     Dates: start: 20040101, end: 20040101
  4. MEPROBAMATE [Suspect]
     Dosage: PO
     Route: 048
     Dates: start: 20040101, end: 20040101

REACTIONS (4)
  - CARDIAC ARREST [None]
  - COMPLETED SUICIDE [None]
  - MULTIPLE DRUG OVERDOSE INTENTIONAL [None]
  - THERAPY NON-RESPONDER [None]
